FAERS Safety Report 16006959 (Version 1)
Quarter: 2019Q1

REPORT INFORMATION
  Report Type: Spontaneous
  Country: US (occurrence: US)
  Receive Date: 20190226
  Receipt Date: 20190226
  Transmission Date: 20190418
  Serious: No
  Sender: FDA-Public Use
  Company Number: US-009507513-1902USA009002

PATIENT
  Sex: Female
  Weight: 91.63 kg

DRUGS (22)
  1. SYNTHROID [Concomitant]
     Active Substance: LEVOTHYROXINE SODIUM
     Indication: THYROID DISORDER
     Dosage: 0.88 MILLIGRAM, QD
     Route: 048
     Dates: start: 1973
  2. POTASSIUM (UNSPECIFIED) [Concomitant]
     Active Substance: POTASSIUM
     Indication: CROHN^S DISEASE
     Dosage: 20 MILLIEQUIVALENT
     Dates: start: 1995
  3. ALLEGRA-D [Concomitant]
     Active Substance: FEXOFENADINE\PSEUDOEPHEDRINE
     Indication: SINUS DISORDER
     Dosage: 1 TABLET, QD
     Route: 048
     Dates: start: 2000
  4. LOMOTIL (LOPERAMIDE HYDROCHLORIDE) [Concomitant]
     Active Substance: LOPERAMIDE HYDROCHLORIDE
     Indication: CROHN^S DISEASE
     Dosage: 2.5 MILLIGRAM, PRN
     Dates: start: 1990
  5. FLOVENT [Concomitant]
     Active Substance: FLUTICASONE PROPIONATE
     Dosage: 110 MICROGRAM(2 PUFFS TWO TIMES A DAY)
     Dates: start: 2005
  6. BUDESONIDE. [Concomitant]
     Active Substance: BUDESONIDE
     Indication: SINUS DISORDER
     Dosage: 0.6 MILLIGRAM
  7. NITROSTAT [Concomitant]
     Active Substance: NITROGLYCERIN
     Indication: CHEST PAIN
     Dosage: 0.4 MILLIGRAM, PRN
     Dates: start: 1990
  8. NASONEX [Suspect]
     Active Substance: MOMETASONE FUROATE
  9. PROTONIX [Concomitant]
     Active Substance: PANTOPRAZOLE SODIUM
     Indication: CROHN^S DISEASE
     Dosage: 40 MILLIGRAM, QD
     Route: 048
     Dates: start: 1990
  10. EPIPEN [Concomitant]
     Active Substance: EPINEPHRINE
     Indication: ARTHROPOD STING
     Dosage: UNK
  11. ASPIRIN. [Concomitant]
     Active Substance: ASPIRIN
     Dosage: 81 MILLIGRAM, QD
  12. CORGARD [Suspect]
     Active Substance: NADOLOL
     Indication: CARDIAC FAILURE CONGESTIVE
     Dosage: 60 MILLIGRAM, QD
     Route: 048
     Dates: start: 1989
  13. ZOFRAN [Concomitant]
     Active Substance: ONDANSETRON HYDROCHLORIDE
     Indication: CROHN^S DISEASE
     Dosage: 4 MILLIGRAM, PRN
     Dates: start: 2006
  14. OXYGEN. [Concomitant]
     Active Substance: OXYGEN
     Indication: CARDIAC FAILURE CONGESTIVE
     Dosage: 3 LITER 24/7
  15. VALTREX [Concomitant]
     Active Substance: VALACYCLOVIR HYDROCHLORIDE
     Indication: HERPES VIRUS INFECTION
     Dosage: 500 MILLIGRAM, QD
     Route: 048
  16. MUCINEX [Concomitant]
     Active Substance: GUAIFENESIN
     Indication: SINUS DISORDER
     Dosage: 600 MILLIGRAM, QD
     Dates: start: 2000
  17. EPIPEN [Concomitant]
     Active Substance: EPINEPHRINE
     Indication: ARTHROPOD STING
  18. FUROSEMIDE. [Concomitant]
     Active Substance: FUROSEMIDE
     Indication: FLUID RETENTION
     Dosage: 40 MILLIGRAM
     Dates: start: 1973
  19. MAGNESIUM (UNSPECIFIED) [Concomitant]
     Active Substance: MAGNESIUM
     Indication: CROHN^S DISEASE
     Dosage: 1 TABLET, BID
     Route: 048
     Dates: start: 1995
  20. PHENERGAN [Concomitant]
     Active Substance: PROMETHAZINE HYDROCHLORIDE
     Indication: CROHN^S DISEASE
     Dosage: UNK, PRN
     Dates: start: 1996
  21. TRAMADOL HYDROCHLORIDE. [Concomitant]
     Active Substance: TRAMADOL HYDROCHLORIDE
     Indication: ARTHRALGIA
     Dosage: 50 MILLIGRAM, PRN
     Dates: start: 2016
  22. CYCLOBENZAPRINE HYDROCHLORIDE. [Concomitant]
     Active Substance: CYCLOBENZAPRINE HYDROCHLORIDE
     Indication: MUSCLE SPASMS
     Dosage: 5 MILLIGRAM, PRN
     Dates: start: 2017

REACTIONS (1)
  - Drug hypersensitivity [Unknown]
